FAERS Safety Report 7190369-X (Version None)
Quarter: 2010Q4

REPORT INFORMATION
  Report Type: 
  Country: None (occurrence: None)
  Receive Date: 20101223
  Receipt Date: 20101217
  Transmission Date: 20110411
  Serious: Yes (Death, Hospitalization)
  Sender: FDA-Public Use
  Company Number: MX-SANOFI-AVENTIS-2010SA076622

PATIENT
  Sex: Female

DRUGS (1)
  1. LANTUS [Suspect]
     Indication: TYPE 2 DIABETES MELLITUS
     Dosage: 15 TO 20 IU / DAY (AT NIGHT, DOSE DEPENDING ON THE PATIENT'S GLUCOSE LEVELS) ????
     Route: 058
     Dates: start: 20020101

REACTIONS (6)
  - ACUTE MYOCARDIAL INFARCTION [None]
  - COUGH [None]
  - DYSPNOEA [None]
  - MALAISE [None]
  - PNEUMONIA [None]
  - RENAL FAILURE ACUTE [None]
